FAERS Safety Report 4621879-4 (Version None)
Quarter: 2005Q1

REPORT INFORMATION
  Report Type: 
  Country: None (occurrence: None)
  Receive Date: 20050329
  Receipt Date: 20050317
  Transmission Date: 20050727
  Serious: Yes (Hospitalization)
  Sender: FDA-Public Use
  Company Number: GB-BRISTOL-MYERS SQUIBB COMPANY-12902250

PATIENT
  Sex: Female

DRUGS (1)
  1. COUMADIN [Suspect]
     Indication: HEART VALVE REPLACEMENT

REACTIONS (2)
  - CHOLECYSTITIS INFECTIVE [None]
  - HAEMORRHAGE [None]
